FAERS Safety Report 8316369-1 (Version None)
Quarter: 2012Q2

REPORT INFORMATION
  Report Type: 
  Country: None (occurrence: None)
  Receive Date: 20120427
  Receipt Date: 20120417
  Transmission Date: 20120825
  Serious: No
  Sender: FDA-Public Use
  Company Number: US-PFIZER INC-2012095337

PATIENT
  Sex: Male
  Weight: 126.98 kg

DRUGS (4)
  1. FUROSEMIDE [Concomitant]
     Indication: FLUID RETENTION
     Dosage: UNK
  2. LACTULOSE [Concomitant]
     Dosage: UNK
  3. VIAGRA [Suspect]
     Dosage: 50 MG, AS NEEDED
     Dates: start: 20120401
  4. VIAGRA [Suspect]
     Indication: ERECTILE DYSFUNCTION
     Dosage: 25 MG, AS NEEDED
     Route: 048
     Dates: start: 20120401

REACTIONS (1)
  - DRUG INEFFECTIVE [None]
